FAERS Safety Report 11777396 (Version 1)
Quarter: 2015Q4

REPORT INFORMATION
  Report Type: Spontaneous
  Country: US (occurrence: US)
  Receive Date: 20151125
  Receipt Date: 20151125
  Transmission Date: 20160304
  Serious: No
  Sender: FDA-Public Use
  Company Number: US-MALLINCKRODT-T201504784

PATIENT
  Age: 15 Year
  Sex: Male

DRUGS (17)
  1. GABLOFEN [Suspect]
     Active Substance: BACLOFEN
     Dosage: 318.9 MCG/DAY
     Route: 037
     Dates: start: 20150525
  2. MEPHYTON [Concomitant]
     Active Substance: PHYTONADIONE
  3. FISH OIL [Concomitant]
     Active Substance: FISH OIL
  4. GABLOFEN [Suspect]
     Active Substance: BACLOFEN
     Indication: MUSCLE SPASTICITY
     Dosage: 318.9 MCG/DAY
     Route: 037
     Dates: start: 20150518
  5. PEPTAMEN [Concomitant]
  6. GABLOFEN [Suspect]
     Active Substance: BACLOFEN
     Dosage: 50 MCG BOLUS
     Route: 037
     Dates: start: 20150910, end: 20150910
  7. VENTOLIN [Concomitant]
     Active Substance: ALBUTEROL SULFATE
  8. CITALOPRAM [Concomitant]
     Active Substance: CITALOPRAM HYDROBROMIDE
  9. LIDOCAINE. [Concomitant]
     Active Substance: LIDOCAINE
     Indication: PREMEDICATION
     Dosage: 1 H PRIOR TO PUMP REFILL
     Route: 003
  10. POLYETHYLENE GLYCOL [Concomitant]
     Active Substance: POLYETHYLENE GLYCOLS
  11. CREON [Concomitant]
     Active Substance: PANCRELIPASE AMYLASE\PANCRELIPASE LIPASE\PANCRELIPASE PROTEASE
  12. OMEPRAZOLE. [Concomitant]
     Active Substance: OMEPRAZOLE
  13. VITAMIN D3 [Concomitant]
     Active Substance: CHOLECALCIFEROL
  14. PULMOZYME [Concomitant]
     Active Substance: DORNASE ALFA
  15. MULTIVITAMIN [Concomitant]
     Active Substance: VITAMINS
  16. BACLOFEN. [Concomitant]
     Active Substance: BACLOFEN
     Dosage: PRN
     Route: 048
  17. SENNA [Concomitant]
     Active Substance: SENNA LEAF\SENNOSIDES\SENNOSIDES A AND B

REACTIONS (4)
  - Drug withdrawal syndrome [Recovered/Resolved]
  - Headache [Recovering/Resolving]
  - Clonus [Recovered/Resolved]
  - Back pain [Recovering/Resolving]

NARRATIVE: CASE EVENT DATE: 20150910
